FAERS Safety Report 15731625 (Version 10)
Quarter: 2025Q4

REPORT INFORMATION
  Report Type: Spontaneous
  Country: EU (occurrence: EU)
  Receive Date: 20181217
  Receipt Date: 20251114
  Transmission Date: 20260117
  Serious: Yes (Death, Hospitalization)
  Sender: BOEHRINGER INGELHEIM
  Company Number: EU-TEVA-2018-CZ-987012

PATIENT
  Age: 80 Year
  Sex: Male
  Weight: 61 kg

DRUGS (4)
  1. DABIGATRAN [Suspect]
     Active Substance: DABIGATRAN
     Indication: Cerebrovascular accident prophylaxis
     Route: 048
  2. DABIGATRAN [Suspect]
     Active Substance: DABIGATRAN
     Indication: Atrial fibrillation
  3. CLARITHROMYCIN [Suspect]
     Active Substance: CLARITHROMYCIN
     Indication: Pneumonia
     Route: 048
  4. AMOXICILLIN\CLAVULANIC ACID [Suspect]
     Active Substance: AMOXICILLIN\CLAVULANIC ACID
     Indication: Pneumonia
     Route: 048

REACTIONS (4)
  - Gastrointestinal haemorrhage [Fatal]
  - Gingival bleeding [Fatal]
  - Epistaxis [Fatal]
  - Drug interaction [Unknown]
